FAERS Safety Report 5379126-4 (Version None)
Quarter: 2007Q3

REPORT INFORMATION
  Report Type: 
  Country: None (occurrence: None)
  Receive Date: 20070705
  Receipt Date: 20070622
  Transmission Date: 20080115
  Serious: Yes (Hospitalization)
  Sender: FDA-Public Use
  Company Number: CA-ELI_LILLY_AND_COMPANY-CA200706005734

PATIENT
  Age: 40 Year
  Sex: Male

DRUGS (1)
  1. STRATTERA [Suspect]
     Dosage: 120 MG, DAILY (1/D)

REACTIONS (2)
  - OVERDOSE [None]
  - PSYCHOTIC DISORDER [None]
